FAERS Safety Report 6994762-7 (Version None)
Quarter: 2010Q3

REPORT INFORMATION
  Report Type: 
  Country: None (occurrence: None)
  Receive Date: 20100915
  Receipt Date: 20100830
  Transmission Date: 20110219
  Serious: Yes (Death)
  Sender: FDA-Public Use
  Company Number: AUR-APL-2010-02156

PATIENT
  Age: 57 Year
  Sex: Male

DRUGS (4)
  1. RISPERIDONE [Suspect]
  2. DULOXETINE HYDROCHLORIDE [Suspect]
  3. FENTANYL-75 [Suspect]
     Dosage: TRANSDERMAL
     Route: 062
  4. TRAZODONE HCL [Suspect]

REACTIONS (6)
  - ACCIDENTAL DEATH [None]
  - ALCOHOL POISONING [None]
  - CARDIAC ARREST [None]
  - DRUG TOXICITY [None]
  - POISONING [None]
  - UNRESPONSIVE TO STIMULI [None]
